FAERS Safety Report 13573614 (Version 6)
Quarter: 2017Q3

REPORT INFORMATION
  Report Type: Spontaneous
  Country: JP (occurrence: JP)
  Receive Date: 20170523
  Receipt Date: 20170901
  Transmission Date: 20171127
  Serious: Yes (Hospitalization)
  Sender: FDA-Public Use
  Company Number: JP-ABBVIE-17P-087-1979665-00

PATIENT
  Age: 70 Year
  Sex: Female
  Weight: 48.4 kg

DRUGS (1)
  1. VIEKIRAX [Suspect]
     Active Substance: OMBITASVIR\PARITAPREVIR\RITONAVIR
     Indication: CHRONIC HEPATITIS C
     Route: 048
     Dates: start: 20170308, end: 20170516

REACTIONS (16)
  - Supraventricular extrasystoles [Recovering/Resolving]
  - Palpitations [Recovering/Resolving]
  - Dehydration [Recovering/Resolving]
  - Malaise [Recovering/Resolving]
  - Productive cough [Not Recovered/Not Resolved]
  - Chest discomfort [Unknown]
  - Dizziness postural [Unknown]
  - Decreased appetite [Recovering/Resolving]
  - Atrial fibrillation [Recovering/Resolving]
  - Pneumonia [Recovering/Resolving]
  - Iron deficiency anaemia [Recovering/Resolving]
  - Dyspnoea [Unknown]
  - Pyrexia [Recovered/Resolved]
  - Cold sweat [Unknown]
  - Blood pressure decreased [Recovering/Resolving]
  - Headache [Recovering/Resolving]

NARRATIVE: CASE EVENT DATE: 201705
